FAERS Safety Report 16326792 (Version 1)
Quarter: 2019Q2

REPORT INFORMATION
  Report Type: Spontaneous
  Country: CH (occurrence: CH)
  Receive Date: 20190517
  Receipt Date: 20190517
  Transmission Date: 20190711
  Serious: Yes (Other)
  Sender: FDA-Public Use
  Company Number: CH-AMREGENT-20190950

PATIENT
  Age: 64 Year
  Sex: Male

DRUGS (1)
  1. FERINJECT [Suspect]
     Active Substance: FERRIC CARBOXYMALTOSE
     Dosage: 500 MG, 1 IN 1 TOTAL
     Route: 041
     Dates: start: 20190117, end: 20190117

REACTIONS (7)
  - Infusion site erythema [Recovered/Resolved]
  - Malaise [Recovered/Resolved]
  - Venous haemorrhage [Unknown]
  - Anxiety [Recovered/Resolved]
  - Infusion site extravasation [Recovered/Resolved]
  - Dermatitis allergic [Recovered/Resolved]
  - Blood pressure decreased [Recovered/Resolved]

NARRATIVE: CASE EVENT DATE: 20190117
